FAERS Safety Report 7525375-6 (Version None)
Quarter: 2011Q2

REPORT INFORMATION
  Report Type: 
  Country: None (occurrence: None)
  Receive Date: 20110602
  Receipt Date: 20110602
  Transmission Date: 20111010
  Serious: No
  Sender: FDA-Public Use
  Company Number: None

PATIENT
  Sex: Female

DRUGS (1)
  1. LATANOPROST [Suspect]
     Indication: GLAUCOMA
     Dosage: 1 GTT HS OPHTHALMIC
     Route: 047
     Dates: start: 20110430

REACTIONS (2)
  - EYE PRURITUS [None]
  - PRODUCT SUBSTITUTION ISSUE [None]
